FAERS Safety Report 7203450-3 (Version None)
Quarter: 2010Q4

REPORT INFORMATION
  Report Type: 
  Country: None (occurrence: None)
  Receive Date: 20101230
  Receipt Date: 20101221
  Transmission Date: 20110411
  Serious: Yes (Hospitalization)
  Sender: FDA-Public Use
  Company Number: CA-ELI_LILLY_AND_COMPANY-CA201012005424

PATIENT
  Sex: Female
  Weight: 77 kg

DRUGS (6)
  1. GEMCITABINE HCL [Suspect]
     Indication: PANCREATIC CARCINOMA METASTATIC
     Dosage: 1660 MG, UNK
     Dates: start: 20100415, end: 20100909
  2. DOMPERIDONE [Concomitant]
  3. PANTOPRAZOLE [Concomitant]
  4. HUMALOG [Concomitant]
  5. AMIODARONE [Concomitant]
  6. DIOVAN [Concomitant]
     Dosage: 160 MG, DAILY (1/D)
     Route: 048
     Dates: start: 20100609

REACTIONS (2)
  - HAEMOLYTIC URAEMIC SYNDROME [None]
  - THROMBOTIC THROMBOCYTOPENIC PURPURA [None]
